FAERS Safety Report 8472431-4 (Version None)
Quarter: 2012Q2

REPORT INFORMATION
  Report Type: 
  Country: None (occurrence: None)
  Receive Date: 20120627
  Receipt Date: 20110926
  Transmission Date: 20120825
  Serious: No
  Sender: FDA-Public Use
  Company Number: US-AMGEN-USASP2011050376

PATIENT
  Age: 8 Month
  Sex: Female

DRUGS (2)
  1. PROCRIT [Suspect]
     Indication: PREOPERATIVE CARE
     Dosage: 6400 IU, QWK
     Route: 058
     Dates: start: 20110919
  2. FERROUS SULFATE TAB [Concomitant]
     Indication: SUPPLEMENTATION THERAPY
     Dosage: .6 ML, TID
     Dates: start: 20110912

REACTIONS (1)
  - DIARRHOEA [None]
